FAERS Safety Report 12268808 (Version 1)
Quarter: 2016Q2

REPORT INFORMATION
  Report Type: Report from Study
  Country: US (occurrence: US)
  Receive Date: 20160414
  Receipt Date: 20160414
  Transmission Date: 20160815
  Serious: No
  Sender: FDA-Public Use
  Company Number: ADR-2015-00638

PATIENT
  Age: 77 Year
  Sex: Male

DRUGS (6)
  1. CLONIDINE. [Suspect]
     Active Substance: CLONIDINE
     Dosage: 51.07 MCG/DAY
     Route: 037
  2. DILAUDID [Suspect]
     Active Substance: HYDROMORPHONE HYDROCHLORIDE
     Dosage: 0.85 MG/DAY
     Route: 037
  3. COMPOUNDED BACLOFEN [Suspect]
     Active Substance: BACLOFEN
     Dosage: 153.22 MCG/DAY
     Route: 037
  4. COMPOUNDED BACLOFEN [Suspect]
     Active Substance: BACLOFEN
     Dosage: 179.88 MCG/DAY
     Route: 037
     Dates: start: 20150227
  5. CLONIDINE. [Suspect]
     Active Substance: CLONIDINE
     Dosage: 59.96 MCG/DAY
     Route: 037
     Dates: start: 20150227
  6. DILAUDID [Suspect]
     Active Substance: HYDROMORPHONE HYDROCHLORIDE
     Dosage: 0.9993 MG/DAY
     Route: 037
     Dates: start: 20150227

REACTIONS (2)
  - Overdose [Recovered/Resolved]
  - Adverse drug reaction [Recovered/Resolved]
